FAERS Safety Report 5585760-9 (Version None)
Quarter: 2008Q1

REPORT INFORMATION
  Report Type: 
  Country: None (occurrence: None)
  Receive Date: 20080104
  Receipt Date: 20071221
  Transmission Date: 20080703
  Serious: Yes (Hospitalization, Other)
  Sender: FDA-Public Use
  Company Number: 2007P1000730

PATIENT
  Age: 24 Year
  Sex: Male

DRUGS (1)
  1. BUSULFAN (BUSULFAN) [Suspect]
     Indication: STEM CELL TRANSPLANT
     Dosage: 8.13 ML; ; IV
     Route: 042
     Dates: start: 20070514, end: 20070517

REACTIONS (11)
  - ACUTE GRAFT VERSUS HOST DISEASE [None]
  - ANOREXIA [None]
  - BONE MARROW TRANSPLANT REJECTION [None]
  - CYTOMEGALOVIRUS INFECTION [None]
  - FEBRILE NEUTROPENIA [None]
  - LIVER DISORDER [None]
  - NAUSEA [None]
  - PANCYTOPENIA [None]
  - STOMATITIS [None]
  - VIRAL INFECTION [None]
  - VOMITING [None]
